FAERS Safety Report 11717007 (Version 3)
Quarter: 2018Q1

REPORT INFORMATION
  Report Type: Report from Study
  Country: US (occurrence: US)
  Receive Date: 20151109
  Receipt Date: 20180323
  Transmission Date: 20180508
  Serious: Yes (Hospitalization)
  Sender: FDA-Public Use
  Company Number: US-VERTEX PHARMACEUTICALS-2015-004632

PATIENT
  Age: 16 Year
  Sex: Female

DRUGS (3)
  1. ORKAMBI [Suspect]
     Active Substance: IVACAFTOR\LUMACAFTOR
     Dosage: UNK
     Route: 048
     Dates: start: 2015, end: 2015
  2. ORKAMBI [Suspect]
     Active Substance: IVACAFTOR\LUMACAFTOR
     Dosage: UNK
     Route: 048
     Dates: start: 2015, end: 20151222
  3. ORKAMBI [Suspect]
     Active Substance: IVACAFTOR\LUMACAFTOR
     Indication: CYSTIC FIBROSIS
     Dosage: UNK
     Route: 048
     Dates: start: 20151010, end: 2015

REACTIONS (6)
  - Diarrhoea [Recovered/Resolved]
  - Dyspepsia [Recovered/Resolved]
  - Hospitalisation [Recovered/Resolved]
  - Chest discomfort [Not Recovered/Not Resolved]
  - Dyspnoea [Recovered/Resolved]
  - Abdominal discomfort [Recovered/Resolved]

NARRATIVE: CASE EVENT DATE: 20151010
